FAERS Safety Report 9550526 (Version 1)
Quarter: 2013Q3

REPORT INFORMATION
  Report Type: Spontaneous
  Country: US (occurrence: US)
  Receive Date: 20130924
  Receipt Date: 20130924
  Transmission Date: 20140515
  Serious: No
  Sender: FDA-Public Use
  Company Number: US-SANOFI-AVENTIS-2013SA029233

PATIENT
  Age: 64 Year
  Sex: Female

DRUGS (1)
  1. AUBAGIO [Suspect]
     Indication: MULTIPLE SCLEROSIS
     Route: 048
     Dates: start: 20130208

REACTIONS (9)
  - Asthenia [Unknown]
  - Vertigo [Not Recovered/Not Resolved]
  - Feeling abnormal [Recovered/Resolved]
  - Upper respiratory tract infection [Not Recovered/Not Resolved]
  - Bronchitis [Unknown]
  - Oxygen saturation decreased [Unknown]
  - Nausea [Recovered/Resolved]
  - Hepatic enzyme increased [Unknown]
  - Diarrhoea [Unknown]
